FAERS Safety Report 6130585-9 (Version None)
Quarter: 2009Q1

REPORT INFORMATION
  Report Type: 
  Country: None (occurrence: None)
  Receive Date: 20090323
  Receipt Date: 20090308
  Transmission Date: 20090719
  Serious: Yes (Other)
  Sender: FDA-Public Use
  Company Number: 2007S1006876

PATIENT
  Age: 75 Year
  Sex: Female
  Weight: 70.3075 kg

DRUGS (9)
  1. PHOSPHOSODA FLAVOR NOT SPECIFIED [Suspect]
     Indication: COLONOSCOPY
     Dosage: 90 ML; TOTAL; PO
     Route: 048
     Dates: start: 20060320, end: 20060321
  2. LISINOPRIL [Concomitant]
  3. NORVASC [Concomitant]
  4. ASPIRIN [Concomitant]
  5. CALCIUM [Concomitant]
  6. LORATADINE [Concomitant]
  7. SINGULAIR [Concomitant]
  8. AZMACORT [Concomitant]
  9. ATTCHEW [Concomitant]

REACTIONS (7)
  - DIALYSIS [None]
  - HYPOVOLAEMIA [None]
  - NEPHROCALCINOSIS [None]
  - RENAL FAILURE ACUTE [None]
  - RENAL FAILURE CHRONIC [None]
  - RENAL INJURY [None]
  - RENAL TUBULAR NECROSIS [None]
